FAERS Safety Report 7658838-3 (Version None)
Quarter: 2011Q3

REPORT INFORMATION
  Report Type: 
  Country: None (occurrence: None)
  Receive Date: 20110805
  Receipt Date: 20110725
  Transmission Date: 20111222
  Serious: Yes (Hospitalization)
  Sender: FDA-Public Use
  Company Number: DE-JNJFOC-20110509587

PATIENT
  Sex: Female
  Weight: 142 kg

DRUGS (23)
  1. TAPENTADOL [Suspect]
     Route: 065
     Dates: start: 20101203, end: 20110228
  2. TAPENTADOL [Suspect]
     Route: 065
     Dates: start: 20101203, end: 20110228
  3. AMITRIPTYLINE HCL [Concomitant]
     Indication: DEPRESSION
     Route: 065
  4. MUSCLE RELAXANTS [Concomitant]
     Indication: PAIN
     Route: 065
  5. ANALGESICS [Concomitant]
     Indication: PAIN
     Route: 065
  6. RAMIPRIL [Concomitant]
     Indication: HYPERTENSION
     Route: 065
  7. OMEPRAZOLE [Concomitant]
     Indication: GASTROOESOPHAGEAL REFLUX DISEASE
     Route: 065
  8. TAPENTADOL [Suspect]
     Route: 065
     Dates: start: 20101203, end: 20110228
  9. DULOXETIME HYDROCHLORIDE [Concomitant]
     Indication: DEPRESSION
     Route: 065
  10. DULOXETIME HYDROCHLORIDE [Concomitant]
     Indication: PAIN
     Route: 065
  11. NALOXONE [Concomitant]
     Indication: PAIN
     Dosage: 60/30
     Route: 065
  12. ANTIEMETICS AND ANTINAUSEANTS [Concomitant]
     Route: 065
  13. LAXATIVES [Concomitant]
     Route: 065
  14. MORPHINE HCL ELIXIR [Concomitant]
     Indication: PAIN
     Route: 065
  15. ALL OTHER THERAPEUTIC PRODUCTS [Concomitant]
     Indication: PAIN
  16. TAPENTADOL [Suspect]
     Indication: ARTHRALGIA
     Route: 065
     Dates: start: 20101105
  17. FLUPIRTINE [Concomitant]
     Indication: PAIN
     Route: 065
  18. LYRICA [Concomitant]
     Route: 065
  19. HYDROMORPHONE HCL [Concomitant]
     Indication: PAIN
     Route: 065
  20. TAPENTADOL [Suspect]
     Indication: BACK PAIN
     Route: 065
     Dates: start: 20101105
  21. TAPENTADOL [Suspect]
     Indication: PAIN
     Route: 065
     Dates: start: 20101105
  22. NALOXONE [Concomitant]
     Dosage: 120/60
     Route: 065
  23. AMITRIPTYLINE HCL [Concomitant]
     Indication: PAIN
     Route: 065

REACTIONS (1)
  - HYPERTENSION [None]
